FAERS Safety Report 5842102-9 (Version None)
Quarter: 2008Q3

REPORT INFORMATION
  Report Type: 
  Country: None (occurrence: None)
  Receive Date: 20080812
  Receipt Date: 20080804
  Transmission Date: 20090109
  Serious: Yes (Other)
  Sender: FDA-Public Use
  Company Number: DE-JNJFOC-20080800455

PATIENT
  Age: 72 Year
  Sex: Male

DRUGS (3)
  1. HALDOL [Suspect]
     Dosage: 20 DROPS
     Route: 048
  2. HALDOL [Suspect]
     Dosage: 40 DROPS
     Route: 048
  3. HALDOL [Suspect]
     Indication: DRUG USE FOR UNKNOWN INDICATION
     Dosage: 13 DROPS
     Route: 048

REACTIONS (3)
  - BRADYCARDIA [None]
  - DRUG DEPENDENCE [None]
  - FEAR OF DEATH [None]
